FAERS Safety Report 13094883 (Version 2)
Quarter: 2018Q3

REPORT INFORMATION
  Report Type: Spontaneous
  Country: US (occurrence: US)
  Receive Date: 20170106
  Receipt Date: 20180724
  Transmission Date: 20181010
  Serious: No
  Sender: FDA-Public Use
  Company Number: US-009507513-1612USA010888

PATIENT
  Age: 53 Year
  Sex: Male

DRUGS (14)
  1. NASACORT [Concomitant]
     Active Substance: TRIAMCINOLONE ACETONIDE
     Indication: PARANASAL SINUS HYPERSECRETION
     Dosage: UNK
  2. VENCLEXTA [Suspect]
     Active Substance: VENETOCLAX
     Dosage: 100 MG DAILY DOSE, 1 IN 1 D
     Route: 048
     Dates: start: 20161011, end: 20161017
  3. VENCLEXTA [Suspect]
     Active Substance: VENETOCLAX
     Dosage: 200 MG DAILY DOSE, 1 IN 1 D
     Route: 048
     Dates: start: 20161018, end: 20161024
  4. GLIBOMET [Concomitant]
     Active Substance: GLYBURIDE\METFORMIN HYDROCHLORIDE
     Indication: DIABETES MELLITUS
     Dosage: 5/500 MG AS NEEDED ? ONCE OR TWICE DAILY
     Route: 048
     Dates: start: 2006, end: 2016
  5. JANUMET [Suspect]
     Active Substance: METFORMIN HYDROCHLORIDE\SITAGLIPTIN PHOSPHATE
     Indication: DIABETES MELLITUS
     Dosage: 100/1000 MG, 2 IN 1 D
     Route: 048
     Dates: start: 201611
  6. VENCLEXTA [Suspect]
     Active Substance: VENETOCLAX
     Indication: CHRONIC LYMPHOCYTIC LEUKAEMIA
     Dosage: 20 MG DAILY DOSE, 1 IN 1 D
     Route: 048
     Dates: start: 20160927, end: 20161003
  7. LATANOPROST. [Concomitant]
     Active Substance: LATANOPROST
     Indication: GLAUCOMA
     Dosage: 1 DROP, 1 IN 1 D
     Route: 047
  8. VENCLEXTA [Suspect]
     Active Substance: VENETOCLAX
     Dosage: 400 MG DAILY DOSE, 1 IN 1 D
     Route: 048
     Dates: start: 20161025
  9. VALSARTAN. [Concomitant]
     Active Substance: VALSARTAN
     Indication: HYPERTENSION
     Dosage: 320 MG, DAILY DOSE
     Route: 048
     Dates: start: 201601
  10. NATURE^S CHOICE [Concomitant]
     Indication: ROUTINE HEALTH MAINTENANCE
     Dosage: 1 PILL DAILY, 1 IN 1 D
     Route: 048
     Dates: start: 2016
  11. VENCLEXTA [Suspect]
     Active Substance: VENETOCLAX
     Dosage: 50 MG DAILY DOSE, 1 IN 1 D
     Route: 048
     Dates: start: 20161004, end: 20161010
  12. ZOCOR [Concomitant]
     Active Substance: SIMVASTATIN
     Indication: BLOOD CHOLESTEROL INCREASED
     Dosage: 40 MG, 1 IN 1 D
     Route: 048
     Dates: start: 2016
  13. VITRON?C [Concomitant]
     Active Substance: ASCORBIC ACID\IRON
     Dosage: 65 MG, 2 IN 1 D
     Route: 048
     Dates: start: 201611
  14. LOSARTAN. [Concomitant]
     Active Substance: LOSARTAN
     Indication: HYPERTENSION
     Dosage: 50 MG, QD
     Route: 048

REACTIONS (9)
  - Paranasal sinus discomfort [Not Recovered/Not Resolved]
  - Fatigue [Not Recovered/Not Resolved]
  - Memory impairment [Not Recovered/Not Resolved]
  - Cough [Not Recovered/Not Resolved]
  - Productive cough [Not Recovered/Not Resolved]
  - Nasopharyngitis [Not Recovered/Not Resolved]
  - Diarrhoea [Recovered/Resolved]
  - Food intolerance [Unknown]
  - Poor quality sleep [Unknown]

NARRATIVE: CASE EVENT DATE: 20161116
